FAERS Safety Report 5582280-2 (Version None)
Quarter: 2007Q4

REPORT INFORMATION
  Report Type: 
  Country: None (occurrence: None)
  Receive Date: 20071130
  Receipt Date: 20070705
  Transmission Date: 20080405
  Serious: No
  Sender: FDA-Public Use
  Company Number: US200705001747

PATIENT
  Age: 65 Year
  Sex: Female

DRUGS (7)
  1. BYETTA [Suspect]
     Indication: TYPE 2 DIABETES MELLITUS
     Dosage: 5 UG, 2/D, 10 UG, 2/D, SUBCUTANEOUS
     Route: 058
     Dates: start: 20070401, end: 20070501
  2. BYETTA [Suspect]
     Indication: TYPE 2 DIABETES MELLITUS
     Dosage: 5 UG, 2/D, 10 UG, 2/D, SUBCUTANEOUS
     Route: 058
     Dates: start: 20070501
  3. BYETTA [Suspect]
  4. GLUCOPHAGE [Concomitant]
  5. ACTOS [Concomitant]
  6. AVANDIA [Concomitant]
  7. AMARYL [Concomitant]

REACTIONS (4)
  - ALOPECIA [None]
  - FEELING COLD [None]
  - MALAISE [None]
  - NAUSEA [None]
